FAERS Safety Report 8391561-9 (Version None)
Quarter: 2012Q2

REPORT INFORMATION
  Report Type: 
  Country: None (occurrence: None)
  Receive Date: 20120529
  Receipt Date: 20120524
  Transmission Date: 20120825
  Serious: Yes (Other)
  Sender: FDA-Public Use
  Company Number: VE-PFIZER INC-2012103791

PATIENT
  Age: 62 Year
  Sex: Male

DRUGS (8)
  1. LIPITOR [Suspect]
     Indication: HYPERCHOLESTEROLAEMIA
     Dosage: 40 MG, 1X/DAY
     Route: 048
  2. CADUET [Concomitant]
     Indication: HYPERCHOLESTEROLAEMIA
  3. ACCURETIC [Concomitant]
     Indication: HYPERTENSION
     Dosage: [QUINAPRIL 20/ HYDROCHLOROTHIAZIDE12.5 MG], 1X/DAY
     Route: 048
  4. PLAVIX [Concomitant]
     Indication: CARDIAC DISORDER
     Dosage: 75 MG, 1X/DAY
     Route: 048
  5. CADUET [Concomitant]
     Indication: HYPERTENSION
     Dosage: [AMLODIPINE 5/ ATORVASTATIN10 MG], 1X/DAY
     Route: 048
  6. LIPITOR [Suspect]
     Indication: HYPERTRIGLYCERIDAEMIA
  7. RASILEZ [Suspect]
     Indication: HYPERTENSION
     Dosage: 300 MG, 1X/DAY
     Route: 048
  8. OLMESARTAN MEDOXOMIL AND HYDROCHLOROTHIZIDE [Concomitant]
     Indication: HYPERTENSION
     Dosage: [40 OLMESARTAN/ HYDROCHLOROTHIAZIDE 12.5 MG], 1X/DAY
     Route: 048

REACTIONS (2)
  - RENAL FAILURE [None]
  - BLOOD GLUCOSE INCREASED [None]
